FAERS Safety Report 7339694-X (Version None)
Quarter: 2011Q1

REPORT INFORMATION
  Report Type: 
  Country: None (occurrence: None)
  Receive Date: 20110303
  Receipt Date: 20110303
  Transmission Date: 20110831
  Serious: Yes (Life-Threatening, Other)
  Sender: FDA-Public Use
  Company Number: None

PATIENT
  Age: 41 Year
  Sex: Male
  Weight: 66.6788 kg

DRUGS (1)
  1. ARMOUR-THYROID FORREST 30MG 15MG [Suspect]
     Indication: AUTOIMMUNE THYROIDITIS
     Dosage: 30MG 2X DAILY ORAL
     Route: 048
     Dates: start: 20100807, end: 20110204

REACTIONS (12)
  - PALPITATIONS [None]
  - INSOMNIA [None]
  - DRUG EFFECT DECREASED [None]
  - ASTHENIA [None]
  - HEART RATE IRREGULAR [None]
  - PERIPHERAL COLDNESS [None]
  - BODY TEMPERATURE DECREASED [None]
  - FATIGUE [None]
  - ARRHYTHMIA [None]
  - BLOOD THYROID STIMULATING HORMONE INCREASED [None]
  - ALOPECIA [None]
  - CHOLELITHIASIS [None]
